FAERS Safety Report 23258506 (Version 4)
Quarter: 2024Q1

REPORT INFORMATION
  Report Type: Spontaneous
  Country: US (occurrence: US)
  Receive Date: 20231204
  Receipt Date: 20240105
  Transmission Date: 20240409
  Serious: Yes (Other)
  Sender: FDA-Public Use
  Company Number: US-PFIZER INC-PV202300196436

PATIENT
  Age: 65 Year
  Sex: Female

DRUGS (1)
  1. IBRANCE [Suspect]
     Active Substance: PALBOCICLIB
     Dosage: 100 MG, CYCLIC (100 MG BY MOUTH DAILY, 3 WEEKS ON, 2 WEEKS OFF, 28-DAY SUPPLY)
     Route: 048

REACTIONS (1)
  - Neutropenia [Not Recovered/Not Resolved]
